FAERS Safety Report 7435017-6 (Version None)
Quarter: 2011Q2

REPORT INFORMATION
  Report Type: 
  Country: None (occurrence: None)
  Receive Date: 20110425
  Receipt Date: 20110415
  Transmission Date: 20111010
  Serious: No
  Sender: FDA-Public Use
  Company Number: US-B.I. PHARMACEUTICALS,INC./RIDGEFIELD-2011-BP-11079BP

PATIENT
  Sex: Male

DRUGS (9)
  1. LIPITOR [Concomitant]
     Indication: BLOOD CHOLESTEROL INCREASED
     Route: 048
  2. NIASPAN [Concomitant]
     Indication: BLOOD CHOLESTEROL INCREASED
     Route: 048
  3. PRADAXA [Suspect]
     Indication: ATRIAL FIBRILLATION
     Dosage: 300 MG
     Route: 048
     Dates: start: 20110301
  4. LISINOPRIL [Concomitant]
     Indication: HYPERTENSION
     Route: 048
  5. PROTONIX [Concomitant]
     Indication: DYSPEPSIA
     Route: 048
  6. PROTONIX [Concomitant]
     Indication: GASTROOESOPHAGEAL REFLUX DISEASE
  7. ATENOLOL [Concomitant]
     Indication: HYPERTENSION
  8. ATENOLOL [Concomitant]
     Indication: ARRHYTHMIA
     Route: 048
  9. ASPIRIN [Concomitant]
     Indication: PROPHYLAXIS
     Route: 048

REACTIONS (3)
  - DYSPNOEA [None]
  - HEADACHE [None]
  - CYANOSIS [None]
